FAERS Safety Report 26162182 (Version 1)
Quarter: 2025Q4

REPORT INFORMATION
  Report Type: Spontaneous
  Country: US (occurrence: US)
  Receive Date: 20251216
  Receipt Date: 20251216
  Transmission Date: 20260118
  Serious: No
  Sender: UROGEN PHARMA
  Company Number: US-UROGEN PHARMA LTD.-2025-UGN-000200

PATIENT

DRUGS (1)
  1. ZUSDURI [Suspect]
     Active Substance: MITOMYCIN
     Indication: Bladder transitional cell carcinoma
     Dosage: 75 MILLIGRAM OR 56 MILLILITER (INSTILLATION)
     Route: 043
     Dates: start: 20251021, end: 20251021

REACTIONS (2)
  - Haemorrhage [Not Recovered/Not Resolved]
  - Complication associated with device [Unknown]

NARRATIVE: CASE EVENT DATE: 20251021
